FAERS Safety Report 10213367 (Version 1)
Quarter: 2014Q2

REPORT INFORMATION
  Report Type: Spontaneous
  Country: IT (occurrence: None)
  Receive Date: 20140529
  Receipt Date: 20140529
  Transmission Date: 20141212
  Serious: Yes (Disabling)
  Sender: FDA-Public Use
  Company Number: B0997068A

PATIENT
  Sex: Female

DRUGS (3)
  1. LITHIUM SALT (FORMULATION UNKNOWN) (GENERIC) LITHIUM SALT) [Suspect]
     Indication: BIPOLAR II DISORDER
     Dates: start: 200906, end: 201103
  2. LAMOTRIGINE (FORMULATION UNKNOWN) (GENERIC) (LAMOTRIGINE) [Suspect]
     Indication: BIPOLAR II DISORDER
     Dates: start: 200906
  3. CLONAZEPAM [Concomitant]

REACTIONS (3)
  - Tremor [None]
  - Skin reaction [None]
  - Euphoric mood [None]
